FAERS Safety Report 19067811 (Version 1)
Quarter: 2021Q1

REPORT INFORMATION
  Report Type: Spontaneous
  Country: US (occurrence: US)
  Receive Date: 20210326
  Receipt Date: 20210326
  Transmission Date: 20210420
  Serious: Yes (Death, Hospitalization)
  Sender: FDA-Public Use
  Company Number: None

PATIENT
  Age: 61 Year
  Sex: Male
  Weight: 94 kg

DRUGS (2)
  1. RAMUCIRUMAB [Suspect]
     Active Substance: RAMUCIRUMAB
  2. TAS 102 [Suspect]
     Active Substance: TIPIRACIL HYDROCHLORIDE\TRIFLURIDINE

REACTIONS (5)
  - Cerebrovascular accident [None]
  - Gastrointestinal disorder [None]
  - Large intestinal haemorrhage [None]
  - Rectal haemorrhage [None]
  - Haematochezia [None]

NARRATIVE: CASE EVENT DATE: 20200817
